FAERS Safety Report 10818242 (Version 1)
Quarter: 2015Q1

REPORT INFORMATION
  Report Type: Spontaneous
  Country: EC (occurrence: EC)
  Receive Date: 20150218
  Receipt Date: 20150218
  Transmission Date: 20150721
  Serious: Yes (Hospitalization)
  Sender: FDA-Public Use
  Company Number: EC-PFIZER INC-2015060145

PATIENT
  Age: 84 Year
  Sex: Female

DRUGS (1)
  1. LYRICA [Suspect]
     Active Substance: PREGABALIN
     Dosage: 75 MG, UNK
     Dates: end: 201412

REACTIONS (1)
  - Respiratory disorder [Unknown]
